FAERS Safety Report 9863442 (Version 2)
Quarter: 2014Q2

REPORT INFORMATION
  Report Type: Spontaneous
  Country: US (occurrence: US)
  Receive Date: 20140203
  Receipt Date: 20140422
  Transmission Date: 20141212
  Serious: Yes (Hospitalization, Other)
  Sender: FDA-Public Use
  Company Number: PHEH2014US002129

PATIENT
  Sex: Male

DRUGS (1)
  1. CLOZAPINE [Suspect]
     Dosage: 100 MG, UNK

REACTIONS (7)
  - Mania [Unknown]
  - Tachyphrenia [Unknown]
  - Catatonia [Unknown]
  - Acute psychosis [Unknown]
  - General physical health deterioration [Unknown]
  - Abnormal behaviour [Unknown]
  - Malaise [Unknown]
